FAERS Safety Report 4931763-4 (Version None)
Quarter: 2006Q1

REPORT INFORMATION
  Report Type: 
  Country: None (occurrence: None)
  Receive Date: 20060303
  Receipt Date: 20060224
  Transmission Date: 20060701
  Serious: Yes (Other)
  Sender: FDA-Public Use
  Company Number: US-BRISTOL-MYERS SQUIBB COMPANY-13296835

PATIENT
  Sex: Female

DRUGS (2)
  1. ERBITUX [Suspect]
     Indication: COLORECTAL CANCER
     Dosage: CETUXIMAB IS NOW ^ON HOLD.^
     Route: 042
     Dates: start: 20060222, end: 20060222
  2. IRINOTECAN HCL [Concomitant]
     Dates: start: 20060222

REACTIONS (1)
  - DEAFNESS BILATERAL [None]
